FAERS Safety Report 20925395 (Version 1)
Quarter: 2022Q2

REPORT INFORMATION
  Report Type: Spontaneous
  Country: US (occurrence: US)
  Receive Date: 20220607
  Receipt Date: 20220607
  Transmission Date: 20220721
  Serious: No
  Sender: FDA-Public Use
  Company Number: US-UPSHER-SMITH LABORATORIES, LLC-2021USL00525

PATIENT
  Sex: Male
  Weight: 77.098 kg

DRUGS (5)
  1. PACERONE [Suspect]
     Active Substance: AMIODARONE HYDROCHLORIDE
     Indication: Heart rate abnormal
     Dosage: 200 MG, 1X/DAY
     Route: 048
     Dates: start: 202105, end: 2021
  2. PACERONE [Suspect]
     Active Substance: AMIODARONE HYDROCHLORIDE
     Dosage: 100 MG, 1X/DAY
     Route: 048
     Dates: start: 2021
  3. GRAPEFRUIT JUICE [Suspect]
     Active Substance: GRAPEFRUIT JUICE
     Dosage: UNK
  4. WARFARIN [Concomitant]
     Active Substance: WARFARIN
  5. VITAMINS [Concomitant]
     Active Substance: VITAMINS

REACTIONS (2)
  - Alopecia [Not Recovered/Not Resolved]
  - Labelled drug-food interaction medication error [Not Recovered/Not Resolved]

NARRATIVE: CASE EVENT DATE: 20210101
